FAERS Safety Report 8955138 (Version 1)
Quarter: 2012Q4

REPORT INFORMATION
  Report Type: 
  Country: SE (occurrence: SE)
  Receive Date: 20121207
  Receipt Date: 20121207
  Transmission Date: 20130627
  Serious: Yes (Death)
  Sender: FDA-Public Use
  Company Number: SE-ROCHE-1104685

PATIENT
  Age: 41 Year
  Sex: Male

DRUGS (1)
  1. VISMODEGIB [Suspect]
     Indication: MEDULLOBLASTOMA
     Route: 048
     Dates: start: 20120119, end: 20121108

REACTIONS (3)
  - Death [Fatal]
  - Myalgia [Unknown]
  - Joint swelling [Recovering/Resolving]
